FAERS Safety Report 22614371 (Version 1)
Quarter: 2023Q2

REPORT INFORMATION
  Report Type: Spontaneous
  Country: US (occurrence: None)
  Receive Date: 20230619
  Receipt Date: 20230619
  Transmission Date: 20230721
  Serious: No
  Sender: FDA-Public Use
  Company Number: 2023A137710

PATIENT

DRUGS (1)
  1. BREZTRI [Suspect]
     Active Substance: BUDESONIDE\FORMOTEROL\GLYCOPYRROLATE
     Dosage: 320.0UG UNKNOWN
     Route: 055

REACTIONS (6)
  - Feeling abnormal [Unknown]
  - Apathy [Unknown]
  - Dyspnoea [Unknown]
  - Malaise [Unknown]
  - Device malfunction [Unknown]
  - Device ineffective [Unknown]
